FAERS Safety Report 15338155 (Version 2)
Quarter: 2018Q4

REPORT INFORMATION
  Report Type: Other
  Country: GB (occurrence: GB)
  Receive Date: 20180831
  Receipt Date: 20181114
  Transmission Date: 20190204
  Serious: Yes (Other)
  Sender: FDA-Public Use
  Company Number: GB-LUPIN PHARMACEUTICALS INC.-2018-06067

PATIENT
  Age: 45 Year
  Sex: Male
  Weight: 104.77 kg

DRUGS (4)
  1. METFORMIN [Concomitant]
     Active Substance: METFORMIN HYDROCHLORIDE
     Indication: PRODUCT USED FOR UNKNOWN INDICATION
     Dosage: UNK
     Route: 065
  2. VALSARTAN. [Concomitant]
     Active Substance: VALSARTAN
     Indication: PRODUCT USED FOR UNKNOWN INDICATION
     Dosage: UNK
     Route: 065
  3. TADALAFIL. [Concomitant]
     Active Substance: TADALAFIL
     Indication: PRODUCT USED FOR UNKNOWN INDICATION
     Dosage: UNK
     Route: 065
  4. SIMVASTATIN. [Suspect]
     Active Substance: SIMVASTATIN
     Indication: BLOOD CHOLESTEROL INCREASED
     Dosage: 10-20MG, UNK
     Route: 048
     Dates: start: 201003, end: 201807

REACTIONS (10)
  - Lacrimation increased [Recovering/Resolving]
  - Tendon pain [Not Recovered/Not Resolved]
  - Alopecia [Unknown]
  - Epistaxis [Recovered/Resolved]
  - Skin infection [Unknown]
  - Arthralgia [Not Recovered/Not Resolved]
  - Floppy eyelid syndrome [Recovering/Resolving]
  - Dry eye [Recovering/Resolving]
  - Neuralgia [Not Recovered/Not Resolved]
  - Rash [Not Recovered/Not Resolved]

NARRATIVE: CASE EVENT DATE: 201003
